FAERS Safety Report 6395942-4 (Version None)
Quarter: 2009Q4

REPORT INFORMATION
  Report Type: 
  Country: None (occurrence: None)
  Receive Date: 20091009
  Receipt Date: 20091007
  Transmission Date: 20100525
  Serious: Yes (Other)
  Sender: FDA-Public Use
  Company Number: US-PURDUE-USA-2009-0039674

PATIENT
  Sex: Female

DRUGS (4)
  1. RYZOLT [Suspect]
     Indication: DRUG USE FOR UNKNOWN INDICATION
     Dosage: 200 MG, DAILY
     Route: 048
     Dates: start: 20090817, end: 20090818
  2. CORTISONE [Concomitant]
     Indication: DRUG USE FOR UNKNOWN INDICATION
     Dosage: UNK MG, UNK
     Dates: start: 20090816
  3. ZYRTEC [Concomitant]
     Indication: HYPERSENSITIVITY
     Dosage: 1 TABLET, DAILY
     Route: 048
  4. SPIRONOLACTONE [Concomitant]
     Indication: HAIR DISORDER
     Dosage: 150 MG, DAILY

REACTIONS (10)
  - DIZZINESS [None]
  - FATIGUE [None]
  - FEELING ABNORMAL [None]
  - HALLUCINATION, VISUAL [None]
  - HANGOVER [None]
  - HEADACHE [None]
  - HYPERSOMNIA [None]
  - MEMORY IMPAIRMENT [None]
  - VISION BLURRED [None]
  - VOMITING [None]
